FAERS Safety Report 24396760 (Version 3)
Quarter: 2025Q3

REPORT INFORMATION
  Report Type: Report from Study
  Country: AU (occurrence: AU)
  Receive Date: 20241004
  Receipt Date: 20250909
  Transmission Date: 20251021
  Serious: Yes (Hospitalization)
  Sender: NOVARTIS
  Company Number: AU-002147023-NVSC2024AU181435

PATIENT
  Sex: Female

DRUGS (3)
  1. MAYZENT [Suspect]
     Active Substance: SIPONIMOD
     Indication: Secondary progressive multiple sclerosis
     Dosage: 0.25 MG, QD
     Route: 048
     Dates: start: 20240910, end: 20240913
  2. MAYZENT [Suspect]
     Active Substance: SIPONIMOD
     Dosage: 0.25 MG, QD
     Route: 048
     Dates: start: 20240913
  3. MAYZENT [Suspect]
     Active Substance: SIPONIMOD
     Dosage: 2 MG, QD
     Route: 048

REACTIONS (7)
  - Influenza [Unknown]
  - Heart rate decreased [Unknown]
  - Dizziness [Unknown]
  - Drug titration error [Unknown]
  - Gastritis [Unknown]
  - Malaise [Unknown]
  - Bradycardia [Unknown]

NARRATIVE: CASE EVENT DATE: 20240101
